FAERS Safety Report 15540582 (Version 1)
Quarter: 2018Q4

REPORT INFORMATION
  Report Type: Spontaneous
  Country: FR (occurrence: FR)
  Receive Date: 20181023
  Receipt Date: 20181023
  Transmission Date: 20190205
  Serious: Yes (Hospitalization)
  Sender: FDA-Public Use
  Company Number: FR-SUN PHARMACEUTICAL INDUSTRIES LTD-2018RR-188723

PATIENT

DRUGS (2)
  1. PARACETAMOL [Suspect]
     Active Substance: ACETAMINOPHEN
     Indication: DYSMENORRHOEA
     Dosage: 13 G ENTRE 19H ET 22H ()
     Route: 048
     Dates: start: 20180915, end: 20180915
  2. AMOXICILLIN. [Suspect]
     Active Substance: AMOXICILLIN
     Indication: DYSMENORRHOEA
     Dosage: 10 COMPRIMES DE 500 MG ENTRE 19H ET 22H ()
     Route: 048
     Dates: start: 20180915, end: 20180915

REACTIONS (3)
  - Analgesic drug level increased [Recovered/Resolved]
  - Gastrointestinal disorder [Recovered/Resolved]
  - Vomiting [Recovered/Resolved]

NARRATIVE: CASE EVENT DATE: 20180916
